FAERS Safety Report 18864076 (Version 1)
Quarter: 2021Q1

REPORT INFORMATION
  Report Type: Spontaneous
  Country: FR (occurrence: FR)
  Receive Date: 20210209
  Receipt Date: 20210209
  Transmission Date: 20210420
  Serious: Yes (Other)
  Sender: FDA-Public Use
  Company Number: FR-TEVA-2021-FR-1877429

PATIENT
  Age: 67 Year
  Sex: Female
  Weight: 83 kg

DRUGS (13)
  1. GABAPENTINE [Suspect]
     Active Substance: GABAPENTIN
     Indication: NEURALGIA
     Dosage: 300 MG
     Route: 048
     Dates: start: 202010
  2. PARACETAMOL [Suspect]
     Active Substance: ACETAMINOPHEN
     Indication: PREMEDICATION
     Dosage: 500 MG
     Route: 048
     Dates: start: 20181001
  3. ONPATTRO [Suspect]
     Active Substance: PATISIRAN SODIUM
     Indication: AMYLOIDOSIS
     Dosage: 30 MG
     Route: 042
     Dates: start: 20181001
  4. DOMPERIDONE [Concomitant]
     Active Substance: DOMPERIDONE
  5. ATORVASTATINE [Concomitant]
     Active Substance: ATORVASTATIN
  6. MONOCRIXO [Concomitant]
     Active Substance: TRAMADOL HYDROCHLORIDE
  7. PANTOPRAZOLE [Concomitant]
     Active Substance: PANTOPRAZOLE
  8. DEXAMETHASONE. [Suspect]
     Active Substance: DEXAMETHASONE
     Indication: PREMEDICATION
     Dosage: 10 MG
     Route: 042
     Dates: start: 20181001
  9. KARDEGIC [Concomitant]
     Active Substance: ASPIRIN DL-LYSINE
  10. GUTRON 2,5 MG, COMPRIME [Concomitant]
     Active Substance: MIDODRINE HYDROCHLORIDE
  11. POLARAMINE [Suspect]
     Active Substance: DEXCHLORPHENIRAMINE MALEATE
     Indication: PREMEDICATION
     Dosage: 5 MG
     Route: 042
     Dates: start: 20181001
  12. CLOMIPRAMINE (CHLORHYDRATE DE) [Concomitant]
     Active Substance: CLOMIPRAMINE HYDROCHLORIDE
  13. ESCITALOPRAM [Suspect]
     Active Substance: ESCITALOPRAM OXALATE
     Indication: DEPRESSION
     Dosage: 20 MG
     Route: 048
     Dates: start: 202010

REACTIONS (1)
  - Thrombophlebitis [Not Recovered/Not Resolved]

NARRATIVE: CASE EVENT DATE: 20201224
